FAERS Safety Report 8773285 (Version 1)
Quarter: 2012Q4

REPORT INFORMATION
  Report Type: 
  Country: US (occurrence: US)
  Receive Date: 20120907
  Receipt Date: 20120907
  Transmission Date: 20130627
  Serious: Yes (Hospitalization)
  Sender: FDA-Public Use
  Company Number: PHHY2012US076345

PATIENT
  Age: 57 Year
  Sex: Male

DRUGS (5)
  1. AMIODARONE [Suspect]
     Indication: ATRIAL FIBRILLATION
     Dosage: 150 mg, loading dose
     Route: 042
  2. AMIODARONE [Suspect]
     Dosage: 1 mg per minute
  3. AMIODARONE [Suspect]
     Dosage: 0.5 mg per min
  4. AMIODARONE [Suspect]
     Indication: ATRIAL FIBRILLATION
     Route: 048
  5. METOPROLOL [Concomitant]

REACTIONS (8)
  - Anuria [Unknown]
  - Acute hepatic failure [Recovered/Resolved]
  - Hypoventilation [Recovered/Resolved]
  - Hypotension [Recovered/Resolved]
  - Mental status changes [Recovered/Resolved]
  - Vomiting [Recovered/Resolved]
  - Atrial fibrillation [Recovered/Resolved]
  - Atrial flutter [Recovered/Resolved]
